FAERS Safety Report 24255840 (Version 3)
Quarter: 2024Q4

REPORT INFORMATION
  Report Type: Report from Study
  Country: US (occurrence: US)
  Receive Date: 20240827
  Receipt Date: 20241015
  Transmission Date: 20250115
  Serious: No
  Sender: SUNOVION
  Company Number: US-SUMITOMO PHARMA SWITZERLAND GMBH-2024SPA000732

PATIENT

DRUGS (28)
  1. ORGOVYX [Suspect]
     Active Substance: RELUGOLIX
     Indication: Prostate cancer
     Dosage: 360 MG, SINGLE
     Route: 048
     Dates: start: 20240710, end: 20240711
  2. ORGOVYX [Suspect]
     Active Substance: RELUGOLIX
     Dosage: 120 MG, QD
     Route: 048
     Dates: start: 20240711
  3. LEVOTHYROXINE [Concomitant]
     Active Substance: LEVOTHYROXINE
     Route: 065
  4. BLACK WALNUT (JUGLANS NIGRA POLLEN) [Concomitant]
     Active Substance: JUGLANS NIGRA POLLEN
     Route: 065
  5. POLLENS [Concomitant]
     Route: 065
  6. HERBALS\SAW PALMETTO [Concomitant]
     Active Substance: HERBALS\SAW PALMETTO
     Route: 065
  7. CHAPARRAL FES [Concomitant]
     Route: 065
  8. DIETARY SUPPLEMENT\HERBALS\MILK THISTLE [Concomitant]
     Active Substance: MILK THISTLE
     Route: 065
  9. MARSHMALLOW [Concomitant]
     Active Substance: ALCOHOL
     Route: 065
  10. UBIQUINOL [Concomitant]
     Active Substance: UBIQUINOL
     Route: 065
  11. CHLOROPHYLL [Concomitant]
     Route: 065
  12. CHROMIUM [Concomitant]
     Active Substance: CHROMIC CHLORIDE\CHROMIUM
     Route: 065
  13. MAGNESIUM OXIDE [Concomitant]
     Active Substance: MAGNESIUM OXIDE
     Route: 065
  14. PAU D ARCO [Concomitant]
     Route: 065
  15. NATURAL C [Concomitant]
     Route: 065
  16. DIETARY SUPPLEMENT [Concomitant]
     Active Substance: DIETARY SUPPLEMENT
     Route: 065
  17. ACIDOPHILUS [Concomitant]
     Active Substance: LACTOBACILLUS ACIDOPHILUS
     Route: 065
  18. BROMELAINS [Concomitant]
     Active Substance: BROMELAINS
     Route: 065
  19. PAPAIN [Concomitant]
     Active Substance: PAPAIN
     Route: 065
  20. OREGON GRAPE [Concomitant]
     Route: 065
  21. GRAVEL ROOT [Concomitant]
     Route: 065
  22. VITAMIN B12 [Concomitant]
     Active Substance: CYANOCOBALAMIN
     Route: 065
  23. VITAMIN E [Concomitant]
     Active Substance: .ALPHA.-TOCOPHEROL
     Route: 065
  24. VITAMINS [Concomitant]
     Active Substance: VITAMINS
     Route: 065
  25. DRAMAMINE II [Concomitant]
     Route: 065
  26. Omega 3 + vitamin d [Concomitant]
     Route: 065
  27. SANICULA EUROPAEA [Concomitant]
     Route: 065
  28. LACHNANTHES CAROLINIANA [Concomitant]
     Active Substance: LACHNANTHES CAROLINIANA
     Route: 065

REACTIONS (4)
  - Eczema [Unknown]
  - Hot flush [Unknown]
  - Fatigue [Unknown]
  - Product dose omission in error [Unknown]
